FAERS Safety Report 8452202-5 (Version None)
Quarter: 2012Q2

REPORT INFORMATION
  Report Type: 
  Country: None (occurrence: None)
  Receive Date: 20120620
  Receipt Date: 20120611
  Transmission Date: 20120825
  Serious: Yes (Other)
  Sender: FDA-Public Use
  Company Number: US-ASTRAZENECA-2011SE73123

PATIENT
  Age: 71 Year
  Sex: Female

DRUGS (5)
  1. ARIMIDEX [Suspect]
     Route: 048
  2. MAXAIR [Concomitant]
  3. PULMICORT FLEXHALER [Suspect]
     Route: 055
  4. RHINOCORT [Suspect]
     Route: 045
  5. TAMOXIFEN CITRATE [Suspect]
     Route: 048

REACTIONS (17)
  - AMNESIA [None]
  - DISEASE RECURRENCE [None]
  - BRONCHITIS [None]
  - CHRONIC OBSTRUCTIVE PULMONARY DISEASE [None]
  - WHEEZING [None]
  - RHINITIS [None]
  - HOT FLUSH [None]
  - DRUG DOSE OMISSION [None]
  - DYSPNOEA [None]
  - BLOOD PRESSURE INCREASED [None]
  - MALAISE [None]
  - NEOPLASM MALIGNANT [None]
  - ARTHRITIS [None]
  - BREAST CANCER [None]
  - RECURRENT CANCER [None]
  - AUTOIMMUNE DISORDER [None]
  - VOMITING [None]
